FAERS Safety Report 6253439-6 (Version None)
Quarter: 2009Q3

REPORT INFORMATION
  Report Type: 
  Country: None (occurrence: None)
  Receive Date: 20090701
  Receipt Date: 20090619
  Transmission Date: 20100115
  Serious: Yes (Other)
  Sender: FDA-Public Use
  Company Number: DE-MYLANLABS-2009S1010918

PATIENT
  Age: 84 Year
  Sex: Female
  Weight: 60 kg

DRUGS (4)
  1. CIPRODURA [Suspect]
     Indication: CONSTIPATION
     Route: 048
     Dates: start: 20090606, end: 20090612
  2. ZOLPIDEM [Concomitant]
     Dates: start: 20090615
  3. BLOPRESS [Concomitant]
  4. METODURA [Concomitant]

REACTIONS (2)
  - DISORIENTATION [None]
  - DIZZINESS [None]
